FAERS Safety Report 23357471 (Version 3)
Quarter: 2024Q1

REPORT INFORMATION
  Report Type: Spontaneous
  Country: EG (occurrence: EG)
  Receive Date: 20240102
  Receipt Date: 20240129
  Transmission Date: 20240409
  Serious: Yes (Death, Other)
  Sender: FDA-Public Use
  Company Number: EG-PFIZER INC-PV202300205364

PATIENT
  Age: 70 Year
  Sex: Male
  Weight: 120 kg

DRUGS (1)
  1. AVIBACTAM SODIUM\CEFTAZIDIME [Suspect]
     Active Substance: AVIBACTAM SODIUM\CEFTAZIDIME
     Indication: Pneumonia
     Dosage: TIME INTERVAL: 0.33333333 DAYS: DOSE TEXT-2.5 G, THREE TIMES A DAY (INFUSION TIME: 2 HOURS)
     Route: 042
     Dates: start: 20231217, end: 20231219

REACTIONS (1)
  - Death [Fatal]

NARRATIVE: CASE EVENT DATE: 20231219
